FAERS Safety Report 9448189 (Version 1)
Quarter: 2013Q3

REPORT INFORMATION
  Report Type: Spontaneous
  Country: US (occurrence: None)
  Receive Date: 20130807
  Receipt Date: 20130807
  Transmission Date: 20140515
  Serious: Yes (Other)
  Sender: FDA-Public Use
  Company Number: None

PATIENT
  Age: 9 Year
  Sex: Female
  Weight: 26.21 kg

DRUGS (2)
  1. NORDITROPIN [Suspect]
     Indication: GROWTH HORMONE DEFICIENCY
     Dosage: 1.1 MG DAILY SQ??LOT #/EXP DATES OF GH NOT PROVIDED AS CHILD HAS BEEN USING GH FOR ~1 YEAR (MULTIPLE LOT#^S)??
     Dates: start: 20120709
  2. NORDITROPIN [Suspect]
     Indication: BODY HEIGHT BELOW NORMAL
     Dosage: 1.1 MG DAILY SQ??LOT #/EXP DATES OF GH NOT PROVIDED AS CHILD HAS BEEN USING GH FOR ~1 YEAR (MULTIPLE LOT#^S)??
     Dates: start: 20120709

REACTIONS (1)
  - Parotitis [None]
